FAERS Safety Report 13919164 (Version 1)
Quarter: 2017Q3

REPORT INFORMATION
  Report Type: Spontaneous
  Country: US (occurrence: None)
  Receive Date: 20170828
  Receipt Date: 20170828
  Transmission Date: 20171127
  Serious: Yes (Hospitalization)
  Sender: FDA-Public Use
  Company Number: None

PATIENT
  Age: 73 Year
  Sex: Male

DRUGS (1)
  1. SULFAMETHIZOLE/TRIMETHOPRIM [Suspect]
     Active Substance: SULFAMETHOXAZOLE\TRIMETHOPRIM
     Indication: URINARY TRACT INFECTION
     Route: 048
     Dates: start: 20170606, end: 20170621

REACTIONS (11)
  - Rash erythematous [None]
  - Dyspnoea exertional [None]
  - Fall [None]
  - Rash macular [None]
  - Lip swelling [None]
  - Acute kidney injury [None]
  - Rash pruritic [None]
  - Rash generalised [None]
  - Urticaria [None]
  - Oedema peripheral [None]
  - Blister [None]

NARRATIVE: CASE EVENT DATE: 20170618
